FAERS Safety Report 24169660 (Version 1)
Quarter: 2024Q3

REPORT INFORMATION
  Report Type: Report from Study
  Country: BR (occurrence: BR)
  Receive Date: 20240802
  Receipt Date: 20240802
  Transmission Date: 20241016
  Serious: Yes (Other)
  Sender: NOVARTIS
  Company Number: BR-002147023-NVSC2024BR137620

PATIENT
  Sex: Female
  Weight: 65 kg

DRUGS (11)
  1. KISQALI [Suspect]
     Active Substance: RIBOCICLIB
     Indication: Breast cancer metastatic
     Dosage: 3 DOSAGE FORM, QD
     Route: 048
     Dates: start: 202310, end: 202405
  2. KISQALI [Suspect]
     Active Substance: RIBOCICLIB
     Indication: Liver injury
     Dosage: UNK
     Route: 048
  3. KISQALI [Suspect]
     Active Substance: RIBOCICLIB
     Indication: Hepatic lesion
     Dosage: UNK
     Route: 048
  4. LETROZOLE [Suspect]
     Active Substance: LETROZOLE
     Indication: Breast cancer metastatic
     Dosage: 1 DOSAGE FORM, QD (AT NIGHT)
     Route: 048
     Dates: start: 202310, end: 202405
  5. LETROZOLE [Suspect]
     Active Substance: LETROZOLE
     Indication: Hepatic lesion
  6. ZOMETA [Suspect]
     Active Substance: ZOLEDRONIC ACID
     Indication: Bone cancer
     Dosage: UNK (EVERY 28 DAYS)
     Route: 065
     Dates: start: 202310, end: 202405
  7. METOPROLOL SUCCINATE [Concomitant]
     Active Substance: METOPROLOL SUCCINATE
     Indication: Cardiac disorder
     Dosage: 1 DOSAGE FORM, QD (AT NIGHT)
     Route: 048
     Dates: start: 202201
  8. XGEVA [Concomitant]
     Active Substance: DENOSUMAB
     Indication: Bone cancer
     Dosage: UNK (EVERY 28 DAY)
     Route: 048
     Dates: start: 202405
  9. XELODA [Concomitant]
     Active Substance: CAPECITABINE
     Indication: Breast cancer metastatic
     Dosage: UNK
     Route: 048
     Dates: start: 202405
  10. XELODA [Concomitant]
     Active Substance: CAPECITABINE
     Indication: Hepatic lesion
  11. ENALAPRIL [Concomitant]
     Active Substance: ENALAPRIL
     Indication: Hypertension
     Dosage: 1 DOSAGE FORM, Q12H
     Route: 048
     Dates: start: 202401

REACTIONS (4)
  - Metastases to liver [Not Recovered/Not Resolved]
  - Drug ineffective [Not Recovered/Not Resolved]
  - Muscle spasms [Recovered/Resolved]
  - Anaemia [Not Recovered/Not Resolved]

NARRATIVE: CASE EVENT DATE: 20230101
